FAERS Safety Report 25767786 (Version 1)
Quarter: 2025Q3

REPORT INFORMATION
  Report Type: Spontaneous
  Country: US (occurrence: US)
  Receive Date: 20250905
  Receipt Date: 20250905
  Transmission Date: 20251020
  Serious: No
  Sender: PFIZER
  Company Number: US-PFIZER INC-202500173085

PATIENT
  Age: 78 Year
  Sex: Female

DRUGS (2)
  1. TUKYSA [Interacting]
     Active Substance: TUCATINIB
     Indication: Breast cancer
     Dosage: 300 MG, 2X/DAY (150MG; TAKE 300MG BY MOUTH 2 TIMES DAILY)
  2. PERCOCET [Interacting]
     Active Substance: ACETAMINOPHEN\OXYCODONE HYDROCHLORIDE

REACTIONS (2)
  - Off label use [Unknown]
  - Drug interaction [Unknown]
